FAERS Safety Report 4875714-X (Version None)
Quarter: 2006Q1

REPORT INFORMATION
  Report Type: 
  Country: None (occurrence: None)
  Receive Date: 20060105
  Receipt Date: 20051223
  Transmission Date: 20060701
  Serious: Yes (Death, Hospitalization)
  Sender: FDA-Public Use
  Company Number: 2005RR-01398

PATIENT
  Age: 22 Year
  Sex: Male

DRUGS (2)
  1. FLUOXETINE [Suspect]
     Indication: DEPRESSION
     Dosage: 90 MG, QD, ORAL
     Route: 048
  2. ST JOHN'S WORT (HYPERICUM PERFORATUM) [Suspect]
     Indication: DEPRESSION
     Dosage: 1000 MG, QD, ORAL
     Route: 048

REACTIONS (16)
  - AGRANULOCYTOSIS [None]
  - BONE MARROW NECROSIS [None]
  - CARDIAC ARREST [None]
  - DYSPHAGIA [None]
  - HEPATIC ENZYME INCREASED [None]
  - HYPERAEMIA [None]
  - LABORATORY TEST ABNORMAL [None]
  - MOUTH ULCERATION [None]
  - NASOPHARYNGEAL DISORDER [None]
  - NEUTROPENIA [None]
  - NORMOCHROMIC NORMOCYTIC ANAEMIA [None]
  - OESOPHAGEAL CANDIDIASIS [None]
  - PHARYNGEAL CANDIDIASIS [None]
  - PYREXIA [None]
  - THERAPY NON-RESPONDER [None]
  - VIRAL INFECTION [None]
